FAERS Safety Report 16881013 (Version 1)
Quarter: 2019Q4

REPORT INFORMATION
  Report Type: Spontaneous
  Country: US (occurrence: US)
  Receive Date: 20191003
  Receipt Date: 20191003
  Transmission Date: 20200122
  Serious: No
  Sender: FDA-Public Use
  Company Number: None

PATIENT
  Age: 58 Year
  Sex: Female
  Weight: 65.25 kg

DRUGS (10)
  1. NP THYROID [Suspect]
     Active Substance: LEVOTHYROXINE\LIOTHYRONINE
     Indication: HYPOTHYROIDISM
     Dosage: ?          QUANTITY:1 TABLET(S);?
     Route: 048
     Dates: start: 20170120, end: 20190916
  2. COD LIVER OIL [Concomitant]
     Active Substance: COD LIVER OIL
  3. TURMERIC [Concomitant]
     Active Substance: HERBALS\TURMERIC
  4. MULTI VITAMIN [Concomitant]
     Active Substance: VITAMINS
  5. VITAMIN B COMPLEX [Concomitant]
     Active Substance: CYANOCOBALAMIN\DEXPANTHENOL\NIACINAMIDE\PYRIDOXINE HYDROCHLORIDE\RIBOFLAVIN 5^-PHOSPHATE SODIUM\THIAMINE HYDROCHLORIDE\VITAMIN B COMPLEX
  6. VITAMIN C [Concomitant]
     Active Substance: ASCORBIC ACID
  7. CALCIUM [Concomitant]
     Active Substance: CALCIUM
  8. MAGNESIUM [Concomitant]
     Active Substance: MAGNESIUM
  9. VIT D [Concomitant]
     Active Substance: VITAMIN D NOS
  10. ASHWAGANDA [Concomitant]

REACTIONS (7)
  - Product odour abnormal [None]
  - Pharyngeal swelling [None]
  - Headache [None]
  - Heart rate increased [None]
  - Malaise [None]
  - Blood pressure increased [None]
  - Psychomotor hyperactivity [None]

NARRATIVE: CASE EVENT DATE: 20190916
